FAERS Safety Report 9377554 (Version 3)
Quarter: 2014Q1

REPORT INFORMATION
  Report Type: Spontaneous
  Country: JP (occurrence: JP)
  Receive Date: 20130701
  Receipt Date: 20140102
  Transmission Date: 20141002
  Serious: Yes (Death)
  Sender: FDA-Public Use
  Company Number: JP-SANOFI-AVENTIS-2013SA063819

PATIENT
  Age: 80 Year
  Sex: Male
  Weight: 40 kg

DRUGS (15)
  1. ELPLAT [Suspect]
     Indication: COLON CANCER
     Route: 041
     Dates: start: 20130419, end: 20130419
  2. ELPLAT [Suspect]
     Indication: COLON CANCER
     Route: 041
     Dates: start: 20130508, end: 20130508
  3. ELPLAT [Suspect]
     Indication: COLON CANCER
     Route: 041
     Dates: start: 20130605, end: 20130605
  4. 5-FU [Suspect]
     Indication: COLON CANCER
     Route: 040
     Dates: start: 20130419, end: 20130419
  5. 5-FU [Suspect]
     Indication: COLON CANCER
     Dosage: FREQUENCY: ONCE IN 2 DAYS
     Route: 041
     Dates: start: 20130419, end: 20130419
  6. 5-FU [Suspect]
     Indication: COLON CANCER
     Route: 040
     Dates: start: 20130508, end: 20130508
  7. 5-FU [Suspect]
     Indication: COLON CANCER
     Route: 041
     Dates: start: 20130508, end: 20130508
  8. 5-FU [Suspect]
     Indication: COLON CANCER
     Route: 041
     Dates: start: 20130605, end: 20130605
  9. CALCIUM LEVOFOLINATE [Concomitant]
     Dates: start: 20130419, end: 20130605
  10. VECTIBIX [Concomitant]
     Dates: start: 20130419, end: 20130605
  11. PYDOXAL [Concomitant]
     Dates: start: 20130419, end: 20130612
  12. CEFOTAXIME SODIUM [Concomitant]
     Dates: start: 20130611, end: 20130615
  13. DEXART [Concomitant]
     Dates: start: 20130419, end: 20130605
  14. VEEN-F [Concomitant]
     Dates: start: 20130611, end: 20130615
  15. SOLDEM 3A [Concomitant]
     Dates: start: 20130611, end: 20130615

REACTIONS (1)
  - Rhabdomyolysis [Fatal]
